FAERS Safety Report 6298415-2 (Version None)
Quarter: 2009Q3

REPORT INFORMATION
  Report Type: 
  Country: None (occurrence: None)
  Receive Date: 20090805
  Receipt Date: 20090729
  Transmission Date: 20100115
  Serious: Yes (Hospitalization)
  Sender: FDA-Public Use
  Company Number: JP-SANOFI-SYNTHELABO-A01200907962

PATIENT
  Sex: Female

DRUGS (12)
  1. MYSLEE [Suspect]
     Indication: DEPRESSION
     Route: 048
     Dates: start: 20080901, end: 20090616
  2. CHOLEBINE MINI [Suspect]
     Indication: DRUG USE FOR UNKNOWN INDICATION
     Route: 048
     Dates: start: 20080901, end: 20090616
  3. BOUFUUTSUUSHOUSAN [Suspect]
     Indication: DRUG USE FOR UNKNOWN INDICATION
     Route: 048
     Dates: start: 20080901, end: 20090616
  4. ANAFRANIL [Suspect]
     Indication: DEPRESSION
     Route: 048
     Dates: start: 20080901, end: 20090616
  5. BIBITTOACE [Suspect]
     Indication: DEPRESSION
     Route: 048
     Dates: start: 20080901, end: 20090616
  6. ZYPREXA [Suspect]
     Indication: DEPRESSION
     Route: 048
     Dates: start: 20080901, end: 20090616
  7. PAXIL [Suspect]
     Indication: DEPRESSION
     Route: 048
     Dates: start: 20080901, end: 20090616
  8. TOLEDOMIN [Suspect]
     Indication: DEPRESSION
     Route: 048
     Dates: start: 20080901, end: 20090616
  9. SOLANAX [Suspect]
     Indication: DEPRESSION
     Route: 048
     Dates: start: 20080901, end: 20090616
  10. LANSAP [Suspect]
     Indication: HELICOBACTER INFECTION
     Route: 048
     Dates: start: 20090608, end: 20090614
  11. SULPIRIDE [Suspect]
     Indication: DEPRESSION
     Route: 048
     Dates: start: 20080901, end: 20090616
  12. DEPAKENE [Suspect]
     Indication: DEPRESSION
     Route: 048
     Dates: start: 20080901, end: 20090616

REACTIONS (1)
  - TOXIC SKIN ERUPTION [None]
